FAERS Safety Report 8112349-X (Version None)
Quarter: 2012Q1

REPORT INFORMATION
  Report Type: 
  Country: None (occurrence: None)
  Receive Date: 20120203
  Receipt Date: 20111209
  Transmission Date: 20120608
  Serious: No
  Sender: FDA-Public Use
  Company Number: US-ASTRAZENECA-2011SE68355

PATIENT
  Age: 82 Year
  Sex: Male

DRUGS (3)
  1. VANDETANIB [Suspect]
     Indication: THYROID CANCER
     Route: 048
  2. METROGEL [Concomitant]
  3. ASPIR-81 [Concomitant]

REACTIONS (2)
  - RASH [None]
  - FLUSHING [None]
